FAERS Safety Report 14233953 (Version 2)
Quarter: 2018Q1

REPORT INFORMATION
  Report Type: Spontaneous
  Country: JP (occurrence: JP)
  Receive Date: 20171129
  Receipt Date: 20180208
  Transmission Date: 20180508
  Serious: No
  Sender: FDA-Public Use
  Company Number: JP-OTSUKA-2017_025772

PATIENT
  Age: 4 Decade
  Sex: Female

DRUGS (2)
  1. SAMSCA [Suspect]
     Active Substance: TOLVAPTAN
     Indication: CONGENITAL CYSTIC KIDNEY DISEASE
     Dosage: 60MG/DAY, UNK
     Route: 048
  2. SAMSCA [Suspect]
     Active Substance: TOLVAPTAN
     Dosage: UNK
     Route: 065

REACTIONS (1)
  - Hepatic function abnormal [Recovered/Resolved]

NARRATIVE: CASE EVENT DATE: 20171001
